FAERS Safety Report 5885462-5 (Version None)
Quarter: 2008Q3

REPORT INFORMATION
  Report Type: 
  Country: None (occurrence: None)
  Receive Date: 20080915
  Receipt Date: 20080915
  Transmission Date: 20090109
  Serious: Yes (Other)
  Sender: FDA-Public Use
  Company Number: None

PATIENT
  Age: 62 Year
  Sex: Female
  Weight: 81.6475 kg

DRUGS (3)
  1. CYMBALTA [Suspect]
     Indication: ARTHRALGIA
     Dosage: 30MG 1 PER DAY PO
     Route: 048
     Dates: start: 20060901, end: 20080914
  2. CYMBALTA [Suspect]
     Indication: BACK PAIN
     Dosage: 30MG 1 PER DAY PO
     Route: 048
     Dates: start: 20060901, end: 20080914
  3. CYMBALTA [Suspect]
     Indication: NECK PAIN
     Dosage: 30MG 1 PER DAY PO
     Route: 048
     Dates: start: 20060901, end: 20080914

REACTIONS (18)
  - ABDOMINAL DISTENSION [None]
  - ABDOMINAL PAIN UPPER [None]
  - ANXIETY [None]
  - DIARRHOEA [None]
  - ERUCTATION [None]
  - FLATULENCE [None]
  - HEADACHE [None]
  - HEART RATE INCREASED [None]
  - HOT FLUSH [None]
  - HYPERHIDROSIS [None]
  - INSOMNIA [None]
  - NAUSEA [None]
  - PAIN [None]
  - PALPITATIONS [None]
  - PANIC ATTACK [None]
  - THIRST [None]
  - TOOTHACHE [None]
  - VOMITING [None]
